FAERS Safety Report 5911024-7 (Version None)
Quarter: 2008Q4

REPORT INFORMATION
  Report Type: 
  Country: None (occurrence: None)
  Receive Date: 20081007
  Receipt Date: 20080929
  Transmission Date: 20090506
  Serious: Yes (Hospitalization)
  Sender: FDA-Public Use
  Company Number: IT-TEVA-178158ISR

PATIENT
  Age: 56 Year
  Sex: Male

DRUGS (1)
  1. CARBAMAZEPINE [Suspect]

REACTIONS (2)
  - PLEURAL EFFUSION [None]
  - PLEURISY [None]
